FAERS Safety Report 11718825 (Version 1)
Quarter: 2015Q4

REPORT INFORMATION
  Report Type: Spontaneous
  Country: US (occurrence: None)
  Receive Date: 20151109
  Receipt Date: 20151109
  Transmission Date: 20160304
  Serious: No
  Sender: FDA-Public Use
  Company Number: None

PATIENT
  Age: 60 Year
  Sex: Male
  Weight: 106.6 kg

DRUGS (10)
  1. CARVEDILOL. [Concomitant]
     Active Substance: CARVEDILOL
  2. JARDIANCE [Suspect]
     Active Substance: EMPAGLIFLOZIN
     Indication: DIABETES MELLITUS
     Dosage: TAKEN BY MOUTH ( 1 PILLL)
     Dates: start: 20150928, end: 20151106
  3. ASPIRIN. [Concomitant]
     Active Substance: ASPIRIN
  4. METFORMIN [Concomitant]
     Active Substance: METFORMIN HYDROCHLORIDE
  5. VICTOZA [Concomitant]
     Active Substance: LIRAGLUTIDE
  6. ATORVASTATIN [Concomitant]
     Active Substance: ATORVASTATIN
  7. JARDIANCE [Concomitant]
     Active Substance: EMPAGLIFLOZIN
  8. LANTUS [Concomitant]
     Active Substance: INSULIN GLARGINE
  9. LISINOPRIL. [Concomitant]
     Active Substance: LISINOPRIL
  10. FUROSEMIDE. [Concomitant]
     Active Substance: FUROSEMIDE

REACTIONS (7)
  - Headache [None]
  - Flatulence [None]
  - Nausea [None]
  - Dizziness [None]
  - Diarrhoea [None]
  - No therapeutic response [None]
  - Eructation [None]

NARRATIVE: CASE EVENT DATE: 20151106
